FAERS Safety Report 19900379 (Version 1)
Quarter: 2021Q3

REPORT INFORMATION
  Report Type: Report from Study
  Country: TR (occurrence: TR)
  Receive Date: 20210930
  Receipt Date: 20210930
  Transmission Date: 20211014
  Serious: Yes (Life-Threatening, Hospitalization)
  Sender: FDA-Public Use
  Company Number: TR-CELGENEUS-TUR-20210907519

PATIENT
  Age: 75 Year
  Sex: Female

DRUGS (17)
  1. TRIFLUCAN [Concomitant]
     Active Substance: FLUCONAZOLE
     Indication: APHTHOUS ULCER
     Dosage: 200 MILLIGRAM
     Route: 048
     Dates: start: 20191030
  2. KYTRIL [Concomitant]
     Active Substance: GRANISETRON HYDROCHLORIDE
     Dosage: 1 MILLIGRAM
     Route: 041
     Dates: start: 20191221
  3. MIKOSTATIN [Concomitant]
     Active Substance: NYSTATIN
     Indication: APHTHOUS ULCER
     Dosage: 144 MILLIGRAM
     Route: 048
     Dates: start: 20191030
  4. CALCIMAX D3 [Concomitant]
     Indication: FATIGUE
     Dosage: 1000 MILLIGRAM
     Route: 048
     Dates: start: 20200205
  5. AZACITIDINE. [Suspect]
     Active Substance: AZACITIDINE
     Indication: ACUTE MYELOID LEUKAEMIA
     Dosage: 157.5 MILLIGRAM
     Route: 058
     Dates: start: 20190924, end: 20200426
  6. JNJ?74494550 [Suspect]
     Active Substance: CUSATUZUMAB
     Indication: ACUTE MYELOID LEUKAEMIA
     Dosage: 920 MILLIGRAM
     Route: 041
     Dates: start: 20190926, end: 20200505
  7. MAGNESIUM [Concomitant]
     Active Substance: MAGNESIUM
     Indication: FATIGUE
     Dosage: 365 MILLIGRAM
     Route: 048
     Dates: start: 20200205
  8. CIPRO [Concomitant]
     Active Substance: CIPROFLOXACIN HYDROCHLORIDE
     Indication: FEBRILE NEUTROPENIA
     Dosage: 500 MILLIGRAM
     Route: 048
     Dates: start: 20200415, end: 20200427
  9. AVIL [Concomitant]
     Active Substance: PHENIRAMINE
     Indication: PREMEDICATION
     Dosage: 45.5 MILLIGRAM
     Route: 041
     Dates: start: 20200505, end: 20200505
  10. LERCADIP [Concomitant]
     Active Substance: LERCANIDIPINE HYDROCHLORIDE
     Indication: HYPERTENSION
     Dosage: 10 MILLIGRAM
     Route: 048
     Dates: start: 2017
  11. AKLOVIR [Concomitant]
     Indication: APHTHOUS ULCER
     Dosage: 40 MILLIGRAM
     Route: 061
     Dates: start: 20191121
  12. TRIFLUCAN [Concomitant]
     Active Substance: FLUCONAZOLE
     Indication: FEBRILE NEUTROPENIA
     Dosage: 200 MILLIGRAM
     Route: 048
     Dates: start: 20200415, end: 20200427
  13. KENACORT A ORABASE [Concomitant]
     Indication: APHTHOUS ULCER
     Dosage: 5 MILLIGRAM
     Route: 061
     Dates: start: 20191121
  14. KYTRIL [Concomitant]
     Active Substance: GRANISETRON HYDROCHLORIDE
     Indication: PROPHYLAXIS OF NAUSEA AND VOMITING
     Dosage: 2 MILLIGRAM
     Route: 048
     Dates: start: 20191121
  15. PREDNOL [Concomitant]
     Indication: PREMEDICATION
     Dosage: 125 MILLIGRAM
     Route: 041
     Dates: start: 20200505, end: 20200505
  16. PAROL [Concomitant]
     Active Substance: ACETAMINOPHEN
     Indication: PREMEDICATION
     Dosage: 1000 MILLIGRAM
     Route: 048
     Dates: start: 20200505, end: 20200505
  17. CONCOR (BISOPROLOL FUMARATE) [Concomitant]
     Active Substance: BISOPROLOL FUMARATE
     Indication: HYPERTENSION
     Route: 048

REACTIONS (1)
  - Febrile neutropenia [Recovered/Resolved]

NARRATIVE: CASE EVENT DATE: 20200508
